FAERS Safety Report 4513313-X (Version None)
Quarter: 2004Q4

REPORT INFORMATION
  Report Type: 
  Country: None (occurrence: None)
  Receive Date: 20041124
  Receipt Date: 20041115
  Transmission Date: 20050328
  Serious: Yes (Other)
  Sender: FDA-Public Use
  Company Number: HQWYE491217NOV04

PATIENT
  Age: 53 Year
  Sex: Female

DRUGS (2)
  1. VENLAFAXINE HCL [Suspect]
     Indication: MAJOR DEPRESSION
     Dosage: 75 MG 1X PER 1 DAY
     Route: 048
     Dates: start: 20020101, end: 20041022
  2. VALPROATE SODIUM [Concomitant]

REACTIONS (8)
  - DYSGEUSIA [None]
  - HYPERKERATOSIS [None]
  - NASOPHARYNGEAL DISORDER [None]
  - NECROSIS [None]
  - PAIN [None]
  - PRURITUS [None]
  - STOMATITIS NECROTISING [None]
  - TOXIC EPIDERMAL NECROLYSIS [None]
